FAERS Safety Report 23119265 (Version 1)
Quarter: 2023Q4

REPORT INFORMATION
  Report Type: Spontaneous
  Country: US (occurrence: US)
  Receive Date: 20231028
  Receipt Date: 20231028
  Transmission Date: 20240109
  Serious: No
  Sender: FDA-Public Use
  Company Number: US-TEVA-2023-US-2935943

PATIENT
  Sex: Female

DRUGS (1)
  1. MEFLOQUINE HYDROCHLORIDE [Interacting]
     Active Substance: MEFLOQUINE HYDROCHLORIDE
     Indication: Product used for unknown indication
     Dosage: 250 MG
     Route: 065

REACTIONS (2)
  - Drug interaction [Unknown]
  - Adverse event [Unknown]
